FAERS Safety Report 9408802 (Version 2)
Quarter: 2013Q3

REPORT INFORMATION
  Report Type: Spontaneous
  Country: CA (occurrence: CA)
  Receive Date: 20130719
  Receipt Date: 20130812
  Transmission Date: 20140515
  Serious: Yes (Hospitalization, Other)
  Sender: FDA-Public Use
  Company Number: CA-AMGEN-CANSP2013036783

PATIENT
  Age: 64 Year
  Sex: Female
  Weight: 65.91 kg

DRUGS (4)
  1. PROLIA [Suspect]
     Indication: OSTEOPOROSIS POSTMENOPAUSAL
     Dosage: 60 MG, UNK
     Route: 065
     Dates: start: 20111031
  2. ADVIL                              /00044201/ [Concomitant]
  3. VITAMIN D                          /00107901/ [Concomitant]
  4. ANTIBIOTICS [Concomitant]

REACTIONS (3)
  - Diverticulitis [Recovering/Resolving]
  - Inguinal hernia [Unknown]
  - Large intestinal stenosis [Unknown]
